FAERS Safety Report 9748532 (Version 3)
Quarter: 2014Q1

REPORT INFORMATION
  Report Type: Spontaneous
  Country: US (occurrence: US)
  Receive Date: 20131212
  Receipt Date: 20140226
  Transmission Date: 20141002
  Serious: No
  Sender: FDA-Public Use
  Company Number: US-PFIZER INC-2013355498

PATIENT
  Age: 51 Year
  Sex: Male
  Weight: 59.86 kg

DRUGS (3)
  1. LYRICA [Suspect]
     Indication: RHEUMATOID ARTHRITIS
     Dosage: 75 MG, 2X/DAY
     Dates: start: 2011
  2. LYRICA [Suspect]
     Dosage: UNK
  3. PREDNISONE [Concomitant]
     Indication: RHEUMATOID ARTHRITIS
     Dosage: 5 MG, 2X/DAY

REACTIONS (3)
  - Off label use [Unknown]
  - Drug screen false positive [Unknown]
  - Opiates positive [Unknown]
